FAERS Safety Report 8186723-X (Version None)
Quarter: 2012Q1

REPORT INFORMATION
  Report Type: 
  Country: None (occurrence: None)
  Receive Date: 20120305
  Receipt Date: 20120305
  Transmission Date: 20120608
  Serious: Yes (Other)
  Sender: FDA-Public Use
  Company Number: None

PATIENT
  Sex: Male

DRUGS (1)
  1. ENBREL [Suspect]
     Indication: PSORIATIC ARTHROPATHY
     Dosage: 50MG TWICE WEEKLY SUBCUTANEOUS
     Route: 058
     Dates: start: 20120110, end: 20120301

REACTIONS (4)
  - INFLUENZA LIKE ILLNESS [None]
  - ARTHRITIS [None]
  - INSOMNIA [None]
  - MUSCLE SPASMS [None]
